FAERS Safety Report 8846551 (Version 2)
Quarter: 2013Q1

REPORT INFORMATION
  Report Type: Report from Study
  Country: US (occurrence: US)
  Receive Date: 20121017
  Receipt Date: 20130325
  Transmission Date: 20140127
  Serious: Yes (Hospitalization)
  Sender: FDA-Public Use
  Company Number: US-GLAXOSMITHKLINE-A0997724A

PATIENT
  Age: 73 Year
  Sex: Male
  Weight: 61.8 kg

DRUGS (8)
  1. PAZOPANIB [Suspect]
     Indication: LUNG ADENOCARCINOMA METASTATIC
     Dosage: 400MG PER DAY
     Route: 048
     Dates: start: 20120719, end: 20120913
  2. DENOSUMAB [Concomitant]
     Route: 058
     Dates: start: 20120118, end: 20121017
  3. ENALAPRIL [Concomitant]
     Dosage: 15MG PER DAY
     Route: 048
     Dates: start: 20120718, end: 20121017
  4. LEVOTHYROXINE [Concomitant]
     Dosage: 100MCG PER DAY
     Route: 048
     Dates: start: 2011, end: 20121017
  5. DABIGATRAN [Concomitant]
     Dosage: 150MG TWICE PER DAY
     Route: 048
     Dates: start: 201112, end: 20121017
  6. MEGESTROL ACETATE [Concomitant]
     Dosage: 800MG PER DAY
     Route: 048
     Dates: start: 20120828, end: 20121017
  7. DEXAMETHASONE [Concomitant]
     Dosage: 4MG TWICE PER DAY
     Route: 048
     Dates: start: 20121001, end: 20121017
  8. TRAMADOL [Concomitant]
     Dosage: 50MG TWICE PER DAY
     Route: 048
     Dates: start: 20120919, end: 20121017

REACTIONS (16)
  - Pneumonia [Unknown]
  - Oral candidiasis [Unknown]
  - Dysphagia [Unknown]
  - Fatigue [Unknown]
  - Dizziness [Unknown]
  - Nausea [Unknown]
  - Decreased appetite [Unknown]
  - Weight decreased [Unknown]
  - Malaise [Unknown]
  - Vomiting [Unknown]
  - Dysphonia [Unknown]
  - Dysphonia [Unknown]
  - Oropharyngeal pain [Unknown]
  - Pain [Unknown]
  - Anxiety [Unknown]
  - Supraventricular tachycardia [Unknown]
